FAERS Safety Report 11098012 (Version 4)
Quarter: 2020Q1

REPORT INFORMATION
  Report Type: Spontaneous
  Country: US (occurrence: US)
  Receive Date: 20150507
  Receipt Date: 20200128
  Transmission Date: 20200409
  Serious: Yes (Other)
  Sender: FDA-Public Use
  Company Number: US-PFIZER INC-2014289087

PATIENT
  Age: 55 Year
  Sex: Male

DRUGS (1)
  1. CAVERJECT [Suspect]
     Active Substance: ALPROSTADIL
     Dosage: 40 UG, UNK

REACTIONS (9)
  - Blindness [Unknown]
  - Anxiety [Unknown]
  - Neoplasm malignant [Unknown]
  - Diabetes mellitus [Unknown]
  - Abnormal behaviour [Unknown]
  - Contusion [Unknown]
  - Headache [Unknown]
  - Intentional self-injury [Unknown]
  - Haemorrhage [Unknown]
